FAERS Safety Report 10370637 (Version 1)
Quarter: 2014Q3

REPORT INFORMATION
  Report Type: Spontaneous
  Country: US (occurrence: None)
  Receive Date: 20140807
  Receipt Date: 20140807
  Transmission Date: 20150326
  Serious: Yes (Hospitalization)
  Sender: FDA-Public Use
  Company Number: None

PATIENT
  Age: 57 Year
  Sex: Male
  Weight: 85.5 kg

DRUGS (1)
  1. LISINOPRIL. [Suspect]
     Active Substance: LISINOPRIL
     Indication: HYPERTENSION
     Route: 048
     Dates: start: 20140425, end: 20140520

REACTIONS (5)
  - Laryngeal oedema [None]
  - Angioedema [None]
  - Dyspnoea [None]
  - Swelling [None]
  - Hypersensitivity [None]

NARRATIVE: CASE EVENT DATE: 20140520
